FAERS Safety Report 7000248-6 (Version None)
Quarter: 2010Q3

REPORT INFORMATION
  Report Type: 
  Country: None (occurrence: None)
  Receive Date: 20100920
  Receipt Date: 20071008
  Transmission Date: 20110219
  Serious: Yes (Other)
  Sender: FDA-Public Use
  Company Number: US-ASTRAZENECA-2007UW24206

PATIENT
  Sex: Male

DRUGS (7)
  1. SEROQUEL [Suspect]
     Dosage: 25 MG TO 150 MG, AT NIGHT
     Route: 048
     Dates: start: 19980831
  2. VIAGRA [Concomitant]
     Route: 048
     Dates: start: 19981001
  3. REMERON [Concomitant]
     Dosage: 15 MG TO 45 MG, AT NIGHT
     Dates: start: 19980101
  4. SERAX [Concomitant]
     Dosage: 15 MG, FOUR TO SIX HOURS, AS REQUIRED
     Dates: start: 19980831
  5. PAMELOR [Concomitant]
     Dates: start: 19980101
  6. COGENTIN [Concomitant]
     Dates: start: 19980101, end: 19980831
  7. HALDOL [Concomitant]
     Dates: start: 19980101, end: 19980831

REACTIONS (3)
  - DIABETES MELLITUS [None]
  - KETOACIDOSIS [None]
  - PANCREATITIS [None]
